FAERS Safety Report 4694042-9 (Version None)
Quarter: 2005Q2

REPORT INFORMATION
  Report Type: 
  Country: None (occurrence: None)
  Receive Date: 20050616
  Receipt Date: 20050603
  Transmission Date: 20051028
  Serious: Yes (Other)
  Sender: FDA-Public Use
  Company Number: 2005079844

PATIENT
  Sex: Male

DRUGS (3)
  1. VIAGRA [Suspect]
     Indication: ERECTILE DYSFUNCTION
     Dates: start: 20011001
  2. LIPITOR [Suspect]
     Indication: HYPERLIPIDAEMIA
     Dosage: 10 MG (10 MG, 1 IN 2 D)
     Dates: start: 20011201
  3. ATACAND [Concomitant]

REACTIONS (20)
  - ADRENAL ADENOMA [None]
  - BLOOD CREATINE PHOSPHOKINASE INCREASED [None]
  - BLOOD PRESSURE SYSTOLIC DECREASED [None]
  - CONDITION AGGRAVATED [None]
  - CONJUNCTIVAL HAEMORRHAGE [None]
  - COUGH [None]
  - CYANOPSIA [None]
  - DEHYDRATION [None]
  - EYE HAEMORRHAGE [None]
  - FLUSHING [None]
  - HALO VISION [None]
  - HISTOPLASMOSIS [None]
  - LIPIDS INCREASED [None]
  - MUSCLE SPASMS [None]
  - MUSCLE STRAIN [None]
  - NASAL CONGESTION [None]
  - PAIN [None]
  - PRESUMED OCULAR HISTOPLASMOSIS SYNDROME [None]
  - SCOTOMA [None]
  - VITREOUS FLOATERS [None]
